FAERS Safety Report 16908753 (Version 2)
Quarter: 2022Q4

REPORT INFORMATION
  Report Type: Report from Study
  Country: US (occurrence: None)
  Receive Date: 20191011
  Receipt Date: 20221218
  Transmission Date: 20230113
  Serious: Yes (Other)
  Sender: FDA-Public Use
  Company Number: US-ROCHE-2427087

PATIENT
  Age: 28 Year
  Sex: Male
  Weight: 95.9 kg

DRUGS (8)
  1. ATEZOLIZUMAB [Suspect]
     Active Substance: ATEZOLIZUMAB
     Indication: Colon cancer
     Dosage: MOST RECENT DOSE OF ATEZOLZIUMAB : 29/JUN/2019
     Route: 042
     Dates: start: 20180627
  2. ATEZOLIZUMAB [Suspect]
     Active Substance: ATEZOLIZUMAB
     Dosage: OVER 46 HOURS DAYS 1-3
     Route: 042
     Dates: start: 20190130
  3. FLUOROURACIL [Suspect]
     Active Substance: FLUOROURACIL
     Indication: Colon cancer
     Dosage: MOST RECENT DOSEON 29/JUN/2019
     Route: 042
     Dates: start: 20180627
  4. FLUOROURACIL [Suspect]
     Active Substance: FLUOROURACIL
     Route: 042
     Dates: start: 20190130
  5. LEUCOVORIN CALCIUM [Suspect]
     Active Substance: LEUCOVORIN CALCIUM
     Indication: Colon cancer
     Dosage: MOST RECENT DOSE:27/JUN/2018
     Route: 042
     Dates: start: 20180627
  6. LEUCOVORIN CALCIUM [Suspect]
     Active Substance: LEUCOVORIN CALCIUM
     Route: 042
     Dates: start: 20190130
  7. OXALIPLATIN [Suspect]
     Active Substance: OXALIPLATIN
     Indication: Colon cancer
     Dosage: MOST RECENT DOSE ON 27/JUN/2018
     Route: 042
     Dates: start: 20180627
  8. OXALIPLATIN [Suspect]
     Active Substance: OXALIPLATIN
     Dosage: OVER 2 HOURS ON DAY 1. CYCLES 1-12 CYCLE 14 DAYS
     Route: 042
     Dates: start: 20190130

REACTIONS (2)
  - Blood creatinine increased [Recovering/Resolving]
  - Hypertension [Recovering/Resolving]

NARRATIVE: CASE EVENT DATE: 20180710
